FAERS Safety Report 5747566-7 (Version None)
Quarter: 2008Q2

REPORT INFORMATION
  Report Type: 
  Country: None (occurrence: None)
  Receive Date: 20080523
  Receipt Date: 20080515
  Transmission Date: 20081010
  Serious: Yes (Disabling)
  Sender: FDA-Public Use
  Company Number: GB-BAYER-200811022BNE

PATIENT
  Age: 34 Year
  Sex: Female
  Weight: 88 kg

DRUGS (11)
  1. FLUDARABINE PHOSPHATE [Suspect]
     Indication: LEUKAEMIA
     Route: 042
     Dates: start: 20080311, end: 20080315
  2. CYTARABINE [Suspect]
     Indication: LEUKAEMIA
     Route: 042
     Dates: start: 20080311, end: 20080315
  3. ACYCLOVIR SODIUM [Concomitant]
     Dosage: UNIT DOSE: 400 MG
     Route: 048
  4. AMPHOTERICIN B [Concomitant]
  5. GEMTUZUMAB [Concomitant]
     Route: 042
     Dates: start: 20080125
  6. IDARUBICIN HCL [Concomitant]
     Dates: start: 20080128
  7. ITRACONAZOLE [Concomitant]
     Route: 048
  8. LOPERAMIDE HCL [Concomitant]
     Indication: DIARRHOEA
  9. MEROPENEM [Concomitant]
     Indication: SEPSIS
     Dosage: UNIT DOSE: 1 G
     Route: 042
  10. RETINOIC ACID [Concomitant]
  11. TEICOPLANIN [Concomitant]
     Indication: SEPSIS
     Route: 042

REACTIONS (5)
  - DENERVATION ATROPHY [None]
  - MUSCLE ATROPHY [None]
  - MUSCLE CONTRACTIONS INVOLUNTARY [None]
  - MUSCULAR WEAKNESS [None]
  - NEUROPATHY PERIPHERAL [None]
